FAERS Safety Report 25063286 (Version 1)
Quarter: 2025Q1

REPORT INFORMATION
  Report Type: Spontaneous
  Country: US (occurrence: None)
  Receive Date: 20250311
  Receipt Date: 20250311
  Transmission Date: 20250408
  Serious: Yes (Hospitalization)
  Sender: FDA-CTU
  Company Number: None

PATIENT
  Age: 59 Year
  Sex: Male
  Weight: 120 kg

DRUGS (1)
  1. XELODA [Suspect]
     Active Substance: CAPECITABINE
     Dates: end: 20250305

REACTIONS (21)
  - Nausea [None]
  - Vomiting [None]
  - Abdominal pain [None]
  - Hypophagia [None]
  - Dizziness postural [None]
  - Colitis [None]
  - Proctitis [None]
  - Hyponatraemia [None]
  - Hypokalaemia [None]
  - Neutropenia [None]
  - Toxicity to various agents [None]
  - Diarrhoea [None]
  - Palmar-plantar erythrodysaesthesia syndrome [None]
  - Mucosal inflammation [None]
  - Gastrooesophageal reflux disease [None]
  - Decreased appetite [None]
  - Asthenia [None]
  - Erythema [None]
  - Sensitive skin [None]
  - Stomatitis [None]
  - Cheilitis [None]

NARRATIVE: CASE EVENT DATE: 20250306
